FAERS Safety Report 9030642 (Version 4)
Quarter: 2013Q2

REPORT INFORMATION
  Report Type: Report from Study
  Country: CH (occurrence: CH)
  Receive Date: 20130123
  Receipt Date: 20130627
  Transmission Date: 20140414
  Serious: Yes (Death, Life-Threatening, Hospitalization, Other)
  Sender: FDA-Public Use
  Company Number: CH-GENZYME-CLOF-1002479

PATIENT
  Age: 61 Year
  Sex: Male
  Weight: 84 kg

DRUGS (4)
  1. EVOLTRA [Suspect]
     Indication: ACUTE MYELOID LEUKAEMIA
     Dosage: 20 MG, Q1HR (INDUCTION II)
     Route: 042
     Dates: start: 20121225, end: 20121229
  2. CYTARABINE [Suspect]
     Indication: ACUTE MYELOID LEUKAEMIA
     Dosage: 4000 MG, UNK (INDUCTION II)
     Route: 042
     Dates: start: 20121225, end: 20121230
  3. AMSACRINE [Suspect]
     Indication: ACUTE MYELOID LEUKAEMIA
     Dosage: 240 MG, UNK (INDUCTION II)
     Route: 042
     Dates: start: 20121228, end: 20121230
  4. PANTOPRAZOLE [Concomitant]
     Indication: PROPHYLAXIS
     Dosage: 40 MG, UNK
     Route: 048
     Dates: start: 20121207

REACTIONS (7)
  - Embolism [Fatal]
  - Cerebral fungal infection [Fatal]
  - Acute respiratory distress syndrome [Fatal]
  - Agranulocytosis [Fatal]
  - Clostridium difficile colitis [Fatal]
  - Urinary tract infection [Unknown]
  - Bacterial sepsis [Fatal]
